FAERS Safety Report 7651624-X (Version None)
Quarter: 2011Q3

REPORT INFORMATION
  Report Type: 
  Country: None (occurrence: None)
  Receive Date: 20110802
  Receipt Date: 20110720
  Transmission Date: 20111222
  Serious: No
  Sender: FDA-Public Use
  Company Number: AT-ELI_LILLY_AND_COMPANY-AT201107005731

PATIENT
  Age: 16 Year
  Sex: Female

DRUGS (1)
  1. ZYPREXA [Suspect]
     Indication: ANOREXIA NERVOSA
     Dosage: 5 MG, UNK
     Route: 048

REACTIONS (2)
  - OFF LABEL USE [None]
  - LEUKOPENIA [None]
